FAERS Safety Report 19774424 (Version 1)
Quarter: 2021Q3

REPORT INFORMATION
  Report Type: Spontaneous
  Country: DE (occurrence: DE)
  Receive Date: 20210901
  Receipt Date: 20210901
  Transmission Date: 20211014
  Serious: Yes (Other)
  Sender: FDA-Public Use
  Company Number: DE-CELLTRION INC.-2021DE011626

PATIENT

DRUGS (12)
  1. METHOTREXATE. [Suspect]
     Active Substance: METHOTREXATE
     Dosage: 4000 MG/M2, CYCLIC (CYCLE 1?3 (1 CYCLE OF 2 WEEKS); DAY 1)
     Route: 042
  2. PREDNISOLONE. [Suspect]
     Active Substance: PREDNISOLONE
     Indication: CENTRAL NERVOUS SYSTEM LYMPHOMA
     Dosage: 3 MG, CYCLIC (CYCLE 4 AND 6 (1 CYCLE OF 3 WEEKS); DAY3?5, ROUTE: {INTRACEREBROVENTRICULAR})
     Route: 050
  3. METHOTREXATE. [Suspect]
     Active Substance: METHOTREXATE
     Dosage: 4000 MG/M2, CYCLIC (CYCLE 5 (1 CYCLE OF 2 WEEKS); DAY 1)
     Route: 042
  4. ARA C [Suspect]
     Active Substance: CYTARABINE
     Dosage: 10 MG, CYCLIC (CYCLE 5 (1 CYCLE OF 2 WEEKS); DAY 5)
     Route: 050
  5. ARA C [Suspect]
     Active Substance: CYTARABINE
     Dosage: 10 MG, CYCLIC (CYCLE 4 AND 6 (1 CYCLE OF 3 WEEKS); DAY 6)
     Route: 050
  6. IFOSFAMIDE. [Suspect]
     Active Substance: IFOSFAMIDE
     Indication: CENTRAL NERVOUS SYSTEM LYMPHOMA
     Dosage: 800 MG/M2 (CYCLE 5 (1 CYCLE OF 2 WEEKS); DAY2?5)
     Route: 042
  7. METHOTREXATE. [Suspect]
     Active Substance: METHOTREXATE
     Indication: CENTRAL NERVOUS SYSTEM LYMPHOMA
     Dosage: 2.5 MG, CYCLIC (CYCLE 4 AND 6 (1 CYCLE OF 3 WEEKS); DAY3?5)
     Route: 065
  8. METHOTREXATE. [Suspect]
     Active Substance: METHOTREXATE
     Dosage: 2.5 MG, CYCLIC (CYCLE 5 (1 CYCLE OF 2 WEEKS); DAY 2?4)
     Route: 065
  9. PREDNISOLONE. [Suspect]
     Active Substance: PREDNISOLONE
     Dosage: 3 MG, CYCLIC (CYCLE 5 (1 CYCLE OF 2 WEEKS); DAY 2?4, ROUTE: {INTRACEREBROVENTRICULAR})
     Route: 050
  10. RITUXIMAB. [Suspect]
     Active Substance: RITUXIMAB
     Indication: CENTRAL NERVOUS SYSTEM LYMPHOMA
     Dosage: 500 MG/M2, CYCLIC (CYCLE 1?3 (1 CYCLE OF 2 WEEKS); DAY 0?1)
     Route: 042
  11. ARA C [Suspect]
     Active Substance: CYTARABINE
     Indication: CENTRAL NERVOUS SYSTEM LYMPHOMA
     Dosage: 3000 MG/M2, CYCLIC (CYCLE 4 AND 6 (1 CYCLE OF 3 WEEKS); DAY 1?2)
     Route: 042
  12. IFOSFAMIDE. [Suspect]
     Active Substance: IFOSFAMIDE
     Dosage: 800 MG/M2 (CYCLE 1?3 (1 CYCLE OF 2 WEEKS); DAY 2?5)
     Route: 042

REACTIONS (2)
  - Propionibacterium infection [Unknown]
  - Overdose [Unknown]
